FAERS Safety Report 8061208-X (Version None)
Quarter: 2012Q1

REPORT INFORMATION
  Report Type: 
  Country: None (occurrence: None)
  Receive Date: 20120120
  Receipt Date: 20110901
  Transmission Date: 20120608
  Serious: No
  Sender: FDA-Public Use
  Company Number: US-ALLERGAN-0807410US

PATIENT
  Age: 81 Year
  Sex: Male

DRUGS (3)
  1. MOISTURIZER [Interacting]
     Indication: PRODUCT USED FOR UNKNOWN INDICATION
     Dosage: UNK, UNKNOWN
     Route: 061
  2. RESTASIS [Suspect]
     Indication: DRY EYE
     Dosage: UNK, BID
     Route: 047
     Dates: start: 20080201
  3. RESTASIS [Interacting]
     Dosage: 1 GTT, UNK
     Route: 047
     Dates: start: 20110802

REACTIONS (2)
  - EYE IRRITATION [None]
  - DRUG INTERACTION [None]
